FAERS Safety Report 9489967 (Version 1)
Quarter: 2013Q3

REPORT INFORMATION
  Report Type: Spontaneous
  Country: US (occurrence: US)
  Receive Date: 20130829
  Receipt Date: 20130829
  Transmission Date: 20140515
  Serious: Yes (Hospitalization)
  Sender: FDA-Public Use
  Company Number: US-ABBOTT-13P-163-1138681-00

PATIENT
  Age: 70 Year
  Sex: Male
  Weight: 69.92 kg

DRUGS (2)
  1. ANDROGEL [Suspect]
     Indication: BLOOD TESTOSTERONE DECREASED
     Route: 061
     Dates: start: 20130724, end: 20130803
  2. ANDROGEL [Suspect]
     Route: 061
     Dates: start: 20130813

REACTIONS (6)
  - Haemoglobin decreased [Not Recovered/Not Resolved]
  - Dysstasia [Recovering/Resolving]
  - Dehydration [Not Recovered/Not Resolved]
  - Feeling abnormal [Not Recovered/Not Resolved]
  - Adverse reaction [Not Recovered/Not Resolved]
  - Asthenia [Not Recovered/Not Resolved]
